FAERS Safety Report 23643063 (Version 7)
Quarter: 2025Q4

REPORT INFORMATION
  Report Type: Spontaneous
  Country: US (occurrence: US)
  Receive Date: 20240318
  Receipt Date: 20251002
  Transmission Date: 20260117
  Serious: No
  Sender: PFIZER
  Company Number: US-PFIZER INC-PV202400036316

PATIENT
  Age: 70 Year
  Sex: Male

DRUGS (3)
  1. BOSULIF [Suspect]
     Active Substance: BOSUTINIB MONOHYDRATE
     Dosage: 400 MG, DAILY, TAKE 4 TABLETS (400 MG TOTAL) BY MOUTH DAILY TAKE WITH FOOD, SWALLOW WHOLE
     Route: 048
  2. BOSULIF [Suspect]
     Active Substance: BOSUTINIB MONOHYDRATE
     Dosage: 100 MG, 2X/DAY
     Route: 048
  3. BRAFTOVI [Concomitant]
     Active Substance: ENCORAFENIB
     Dosage: UNK

REACTIONS (3)
  - Gastrointestinal disorder [Unknown]
  - Nausea [Not Recovered/Not Resolved]
  - Gastrointestinal sounds abnormal [Unknown]
